FAERS Safety Report 9408381 (Version 1)
Quarter: 2013Q3

REPORT INFORMATION
  Report Type: Spontaneous
  Country: US (occurrence: US)
  Receive Date: 20130718
  Receipt Date: 20130718
  Transmission Date: 20140515
  Serious: No
  Sender: FDA-Public Use
  Company Number: US-B.I. PHARMACEUTICALS,INC./RIDGEFIELD-2013-BI-20608BP

PATIENT
  Sex: Male

DRUGS (2)
  1. COMBIVENT [Suspect]
     Dosage: STRENGTH: 20 MCG / 100 MCG; DAILY DOSE: 160MCG/800MCG
     Route: 055
  2. COMBIVENT MDI [Concomitant]
     Dosage: (INHALATION AEROSOL) STRENGTH: 18MCG/103MCG; DAILY DOSE: 144MCG/824MCG
     Route: 055

REACTIONS (1)
  - Medication error [Unknown]
